FAERS Safety Report 6661547-0 (Version None)
Quarter: 2010Q1

REPORT INFORMATION
  Report Type: 
  Country: None (occurrence: None)
  Receive Date: 20100329
  Receipt Date: 20100315
  Transmission Date: 20100710
  Serious: Yes (Hospitalization, Other)
  Sender: FDA-Public Use
  Company Number: 232717J10USA

PATIENT
  Age: 65 Year
  Sex: Female

DRUGS (1)
  1. REBIF [Suspect]
     Indication: MULTIPLE SCLEROSIS
     Dosage: 44 MCG, 3 IN 1 WEEKS, SUBCUTANEOUS
     Route: 058
     Dates: start: 20060523, end: 20091001

REACTIONS (5)
  - ACUTE RESPIRATORY FAILURE [None]
  - CARBON DIOXIDE INCREASED [None]
  - HAEMOGLOBIN DECREASED [None]
  - MEMORY IMPAIRMENT [None]
  - PULMONARY HYPERTENSION [None]
